FAERS Safety Report 17059302 (Version 4)
Quarter: 2020Q1

REPORT INFORMATION
  Report Type: Spontaneous
  Country: US (occurrence: US)
  Receive Date: 20191121
  Receipt Date: 20200228
  Transmission Date: 20200409
  Serious: Yes (Hospitalization, Other)
  Sender: FDA-Public Use
  Company Number: US-PFIZER INC-2019502518

PATIENT
  Age: 54 Year
  Sex: Female
  Weight: 95 kg

DRUGS (15)
  1. LIPITOR [Suspect]
     Active Substance: ATORVASTATIN CALCIUM
     Indication: HYPERLIPIDAEMIA
     Dosage: 10 MG, 2X/DAY
     Dates: start: 20190901, end: 20191110
  2. ESTRADIOL. [Concomitant]
     Active Substance: ESTRADIOL
     Dosage: UNK
     Dates: start: 2017
  3. LIPITOR [Suspect]
     Active Substance: ATORVASTATIN CALCIUM
     Indication: HYPERCHOLESTEROLAEMIA
     Dosage: 40 MG, 1X/DAY
     Route: 048
     Dates: start: 20190807, end: 20191025
  4. ESTRADIOL. [Concomitant]
     Active Substance: ESTRADIOL
     Dosage: 1 MG, 1X/DAY
     Route: 048
  5. NORCO [Concomitant]
     Active Substance: ACETAMINOPHEN\HYDROCODONE BITARTRATE
     Dosage: 1 DF, AS NEEDED (5 MG-325 MG TABLET, 1 TAB, EVERY 6 HOURS, AS NEEDED)
     Route: 048
  6. ZOFRAN [Concomitant]
     Active Substance: ONDANSETRON HYDROCHLORIDE
     Dosage: 4 MG, AS NEEDED (4 MG= 1 TAB, EVERY 8 HOUR, AS NEEDED)
     Route: 048
  7. METFORMIN [Concomitant]
     Active Substance: METFORMIN HYDROCHLORIDE
     Indication: DIABETES MELLITUS
     Dosage: 1000 MG, 2X/DAY (500MG (2 TABLETS) BID (TWO TIMES A DAY))
     Dates: start: 2017
  8. MAGNESIUM OXIDE. [Concomitant]
     Active Substance: MAGNESIUM OXIDE
     Dosage: 400 MG, DAILY
     Route: 048
  9. LISINOPRIL AND HYDROCHLOROTHIAZIDE [Concomitant]
     Active Substance: HYDROCHLOROTHIAZIDE\LISINOPRIL
     Indication: HYPERTENSION
     Dosage: 2 DF, DAILY (20/12.5 (2 TABLET) QD (DAILY))
     Route: 048
     Dates: start: 2017
  10. PROMETHAZINE [Concomitant]
     Active Substance: PROMETHAZINE HYDROCHLORIDE
     Dosage: 25 MG, AS NEEDED (25 MG= 1 TAB, EVERY 6 HOUR, AS NEEDED)
     Route: 048
  11. PROPRANOLOL [Concomitant]
     Active Substance: PROPRANOLOL HYDROCHLORIDE
     Dosage: 60 MG, DAILY
     Dates: start: 2018
  12. ESTRACE [Concomitant]
     Active Substance: ESTRADIOL
     Indication: HOT FLUSH
     Dosage: 1 MG, DAILY
     Route: 048
  13. LIPITOR [Suspect]
     Active Substance: ATORVASTATIN CALCIUM
     Indication: DIABETES MELLITUS
  14. GLIMEPIRIDE. [Concomitant]
     Active Substance: GLIMEPIRIDE
     Indication: DIABETES MELLITUS
     Dosage: 1 MG, 2X/DAY (BID (TWICE A DAY))
     Dates: start: 2017
  15. MIRALAX [Concomitant]
     Active Substance: POLYETHYLENE GLYCOL 3350
     Indication: CONSTIPATION
     Dosage: UNK UNK, AS NEEDED

REACTIONS (32)
  - Acute kidney injury [Unknown]
  - Pain [Unknown]
  - Hot flush [Unknown]
  - Acute kidney injury [Recovered/Resolved]
  - Poor quality sleep [Recovered/Resolved]
  - Myositis [Not Recovered/Not Resolved]
  - Mobility decreased [Unknown]
  - Hyponatraemia [Recovering/Resolving]
  - Weight decreased [Unknown]
  - Leukocytosis [Recovering/Resolving]
  - Gait inability [Not Recovered/Not Resolved]
  - Transaminases increased [Recovering/Resolving]
  - Nausea [Not Recovered/Not Resolved]
  - Polymyositis [Unknown]
  - Dermatomyositis [Unknown]
  - Hypokalaemia [Recovered/Resolved]
  - Blood creatine phosphokinase increased [Unknown]
  - Asthenia [Not Recovered/Not Resolved]
  - Malaise [Unknown]
  - Hypophagia [Recovering/Resolving]
  - Asthenia [Unknown]
  - Hepatic enzyme increased [Unknown]
  - Rhabdomyolysis [Not Recovered/Not Resolved]
  - Depression [Unknown]
  - Muscular weakness [Unknown]
  - Headache [Unknown]
  - Burning sensation [Unknown]
  - Myopathy [Unknown]
  - Functional gastrointestinal disorder [Unknown]
  - Frustration tolerance decreased [Unknown]
  - Constipation [Unknown]
  - Thrombocytosis [Unknown]

NARRATIVE: CASE EVENT DATE: 2019
